FAERS Safety Report 13267987 (Version 2)
Quarter: 2017Q1

REPORT INFORMATION
  Report Type: Spontaneous
  Country: US (occurrence: US)
  Receive Date: 20170224
  Receipt Date: 20170323
  Transmission Date: 20170428
  Serious: Yes (Other)
  Sender: FDA-Public Use
  Company Number: US-ASTELLAS-2017US006383

PATIENT
  Age: 86 Year
  Sex: Male

DRUGS (1)
  1. XTANDI [Suspect]
     Active Substance: ENZALUTAMIDE
     Indication: PROSTATE CANCER
     Dosage: 160 MG (4 CAPSULES), ONCE DAILY
     Route: 048
     Dates: start: 201701

REACTIONS (6)
  - Asthenia [Unknown]
  - Constipation [Unknown]
  - Hot flush [Unknown]
  - Bladder disorder [Unknown]
  - Dysuria [Unknown]
  - Haematuria [Unknown]

NARRATIVE: CASE EVENT DATE: 201701
